FAERS Safety Report 9270798 (Version 1)
Quarter: 2013Q2

REPORT INFORMATION
  Report Type: Spontaneous
  Country: US (occurrence: US)
  Receive Date: 20130503
  Receipt Date: 20130503
  Transmission Date: 20140414
  Serious: Yes (Other)
  Sender: FDA-Public Use
  Company Number: US-WATSON-2013-07688

PATIENT
  Age: 57 Year
  Sex: Female
  Weight: 70 kg

DRUGS (5)
  1. HYDROXYCHLOROQUINE SULFATE (WATSON LABORATORIES) [Suspect]
     Indication: ANTIPHOSPHOLIPID SYNDROME
     Dosage: 200 MG, BID
     Route: 065
  2. ASPIRIN [Concomitant]
     Indication: ANTIPHOSPHOLIPID SYNDROME
     Dosage: UNK
     Route: 065
  3. PRAVASTATIN                        /00880402/ [Concomitant]
     Indication: HYPERLIPIDAEMIA
     Dosage: UNK
     Route: 065
  4. ALENDRONAT [Concomitant]
     Indication: OSTEOPENIA
     Dosage: UNK
     Route: 065
  5. FOLATE SODIUM [Concomitant]
     Indication: BLOOD HOMOCYSTEINE INCREASED
     Dosage: UNK
     Route: 065

REACTIONS (1)
  - Congestive cardiomyopathy [Recovering/Resolving]
